FAERS Safety Report 5373167-9 (Version None)
Quarter: 2007Q2

REPORT INFORMATION
  Report Type: 
  Country: None (occurrence: None)
  Receive Date: 20070627
  Receipt Date: 20070615
  Transmission Date: 20071010
  Serious: Yes (Other)
  Sender: FDA-Public Use
  Company Number: JP-PFIZER INC-2007051503

PATIENT
  Age: 36 Year
  Sex: Female

DRUGS (2)
  1. CEFPODOXIME PROXETIL TABLET [Suspect]
     Dates: start: 20051001, end: 20051001
  2. LOXONIN [Suspect]
     Dates: start: 20051001, end: 20051001

REACTIONS (2)
  - HEPATITIS [None]
  - URTICARIA [None]
